FAERS Safety Report 9394860 (Version 7)
Quarter: 2014Q2

REPORT INFORMATION
  Report Type: Spontaneous
  Country: US (occurrence: US)
  Receive Date: 20130711
  Receipt Date: 20140616
  Transmission Date: 20141212
  Serious: Yes (Other)
  Sender: FDA-Public Use
  Company Number: US-PFIZER INC-2013202436

PATIENT
  Age: 66 Year
  Sex: Female

DRUGS (5)
  1. LIPITOR [Suspect]
     Indication: LOW DENSITY LIPOPROTEIN INCREASED
     Dosage: 40 MG, DAILY
     Route: 048
     Dates: start: 200106, end: 201301
  2. LIPITOR [Suspect]
     Indication: CARDIOVASCULAR EVENT PROPHYLAXIS
  3. LEVOTHYROXINE [Concomitant]
     Dosage: 88 UG, UNK
     Dates: start: 20090818
  4. LEVOTHYROXINE [Concomitant]
     Dosage: 100 UG, UNK
     Dates: start: 20090901
  5. SINGULAIR [Concomitant]
     Dosage: 10 MG, UNK
     Dates: start: 20090818

REACTIONS (1)
  - Type 2 diabetes mellitus [Not Recovered/Not Resolved]
